FAERS Safety Report 13959381 (Version 2)
Quarter: 2018Q1

REPORT INFORMATION
  Report Type: Report from Study
  Country: GR (occurrence: GR)
  Receive Date: 20170912
  Receipt Date: 20180101
  Transmission Date: 20180508
  Serious: Yes (Death)
  Sender: FDA-Public Use
  Company Number: GR-ROCHE-1992205

PATIENT
  Sex: Male

DRUGS (4)
  1. PIRFENIDONE. [Suspect]
     Active Substance: PIRFENIDONE
     Indication: IDIOPATHIC PULMONARY FIBROSIS
     Route: 065
     Dates: start: 20120718, end: 20121208
  2. SALOSPIR [Concomitant]
     Active Substance: ASPIRIN
  3. NAC (ACETYLCYSTEINE) [Concomitant]
  4. DIOVAN [Concomitant]
     Active Substance: VALSARTAN

REACTIONS (1)
  - Myocardial infarction [Fatal]
